FAERS Safety Report 7361751-2 (Version None)
Quarter: 2011Q1

REPORT INFORMATION
  Report Type: 
  Country: None (occurrence: None)
  Receive Date: 20110318
  Receipt Date: 20110308
  Transmission Date: 20110831
  Serious: Yes (Death, Hospitalization, Other)
  Sender: FDA-Public Use
  Company Number: US-CELGENEUS-163-21880-10122594

PATIENT
  Sex: Female
  Weight: 65.83 kg

DRUGS (23)
  1. REVLIMID [Suspect]
     Indication: MULTIPLE MYELOMA
     Dosage: 25 MILLIGRAM
     Route: 048
     Dates: start: 20100301
  2. DECADRON [Concomitant]
     Dosage: 40 MILLIGRAM
     Route: 048
     Dates: start: 20100301
  3. VITAMIN D [Concomitant]
     Dosage: 800 IU (INTERNATIONAL UNIT)
     Route: 048
  4. XALATAN [Concomitant]
     Dosage: 1 DROPS
     Route: 047
  5. MS CONTIN [Concomitant]
     Dosage: 15 MILLIGRAM
     Route: 048
  6. DAPSONE [Concomitant]
     Dosage: 100 MILLIGRAM
     Route: 048
  7. SENOKOT [Concomitant]
     Dosage: 3 TABLET
     Route: 048
  8. PRILOSEC [Concomitant]
     Dosage: 20 MILLIGRAM
     Route: 048
  9. OXYGEN [Concomitant]
     Route: 045
  10. REVLIMID [Suspect]
     Dosage: 10 MILLIGRAM
     Route: 048
     Dates: start: 20100301, end: 20100801
  11. ZOMETA [Concomitant]
     Route: 065
  12. ADVAIR DISKUS 100/50 [Concomitant]
     Dosage: 250MCG-50MCG, 1 PUFF
     Route: 055
  13. MORPHINE SULFATE [Concomitant]
     Dosage: 15 MILLIGRAM
     Route: 048
  14. CALCIUM PLUS VITAMIN D [Concomitant]
     Dosage: 600-400
     Route: 048
  15. LISINOPRIL [Concomitant]
     Dosage: 5 MILLIGRAM
     Route: 048
  16. CORTAVITE WITH LUTEIN [Concomitant]
     Dosage: 1 TABLET
     Route: 048
  17. CYMBALTA [Concomitant]
     Indication: BONE PAIN
     Dosage: 30 MILLIGRAM
     Route: 048
     Dates: start: 20100701
  18. ATIVAN [Concomitant]
     Dosage: .5 MILLIGRAM
     Route: 048
  19. ARANESP [Concomitant]
     Route: 065
  20. BUMETANIDE [Concomitant]
     Dosage: 1 MILLIGRAM
     Route: 048
  21. DULCOLAX [Concomitant]
     Dosage: 5 MILLIGRAM
     Route: 048
  22. SINGULAIR [Concomitant]
     Dosage: 10 MILLIGRAM
     Route: 048
  23. POTASSIUM CHLORIDE [Concomitant]
     Dosage: 20 MILLIEQUIVALENTS
     Route: 048

REACTIONS (6)
  - PANCYTOPENIA [None]
  - PYREXIA [None]
  - ENTEROCOLITIS [None]
  - CERVICAL VERTEBRAL FRACTURE [None]
  - DEATH [None]
  - SALMONELLA BACTERAEMIA [None]
